FAERS Safety Report 6917842-0 (Version None)
Quarter: 2010Q3

REPORT INFORMATION
  Report Type: 
  Country: None (occurrence: None)
  Receive Date: 20100810
  Receipt Date: 20090721
  Transmission Date: 20110219
  Serious: No
  Sender: FDA-Public Use
  Company Number: US-PFIZER INC-2009222104

PATIENT
  Sex: Female

DRUGS (5)
  1. TOVIAZ [Suspect]
     Indication: HYPERTONIC BLADDER
     Dosage: 8 MG/DAILY
     Dates: start: 20090501
  2. AZO-STANDARD [Concomitant]
     Dosage: UNK
  3. ALEVE (CAPLET) [Concomitant]
     Dosage: UNK
  4. BACTRIM [Concomitant]
     Dosage: UNK
  5. MOTRIN [Concomitant]
     Dosage: UNK

REACTIONS (1)
  - BLADDER SPASM [None]
